FAERS Safety Report 25135674 (Version 1)
Quarter: 2025Q1

REPORT INFORMATION
  Report Type: Spontaneous
  Country: US (occurrence: None)
  Receive Date: 20250327
  Receipt Date: 20250327
  Transmission Date: 20250408
  Serious: Yes (Hospitalization, Disabling)
  Sender: FDA-CTU
  Company Number: None

PATIENT
  Sex: Female

DRUGS (1)
  1. LAMOTRIGINE [Suspect]
     Active Substance: LAMOTRIGINE
     Dosage: 600 MG DAILY ORAL
     Route: 048
     Dates: start: 20090101

REACTIONS (4)
  - Cerebrovascular accident [None]
  - Dizziness [None]
  - Migraine [None]
  - Gait disturbance [None]
